FAERS Safety Report 24627062 (Version 1)
Quarter: 2024Q4

REPORT INFORMATION
  Report Type: Other
  Country: US (occurrence: US)
  Receive Date: 20241115
  Receipt Date: 20241115
  Transmission Date: 20250115
  Serious: Yes (Death, Hospitalization)
  Sender: ANI
  Company Number: US-ANIPHARMA-012819

PATIENT
  Age: 66 Year
  Sex: Female

DRUGS (9)
  1. FUROSEMIDE [Suspect]
     Active Substance: FUROSEMIDE
     Indication: Hypervolaemia
  2. LACTULOSE [Suspect]
     Active Substance: LACTULOSE
     Indication: Hyperkalaemia
  3. INSULIN NOS [Concomitant]
     Active Substance: INSULIN NOS
     Indication: Product used for unknown indication
     Dosage: 10 UNITS OF INSULIN ALONG WITH GLUCOSE
  4. SODIUM BICARBONATE [Concomitant]
     Active Substance: SODIUM BICARBONATE
     Indication: Product used for unknown indication
  5. PATIROMER [Concomitant]
     Active Substance: PATIROMER
     Indication: Hyperkalaemia
     Dosage: 8.4 G/DAY
  6. SODIUM CITRATE AND CITRIC ACID [Concomitant]
     Active Substance: CITRIC ACID MONOHYDRATE\SODIUM CITRATE
     Indication: Product used for unknown indication
  7. ALBUTEROL [Concomitant]
     Active Substance: ALBUTEROL
     Indication: Product used for unknown indication
  8. DEXTROSE [Concomitant]
     Active Substance: DEXTROSE MONOHYDRATE
     Indication: Product used for unknown indication
  9. PATIROMER [Concomitant]
     Active Substance: PATIROMER
     Indication: Hyperkalaemia
     Dosage: DOSE WAS DOUBLED TO 16.8 G/DAY

REACTIONS (2)
  - Diarrhoea [Unknown]
  - Drug ineffective [Fatal]
